FAERS Safety Report 23682186 (Version 1)
Quarter: 2024Q1

REPORT INFORMATION
  Report Type: Spontaneous
  Country: US (occurrence: None)
  Receive Date: 20240327
  Receipt Date: 20240327
  Transmission Date: 20240410
  Serious: Yes (Death)
  Sender: FDA-Public Use
  Company Number: None

PATIENT
  Sex: Female

DRUGS (10)
  1. VIOKACE [Suspect]
     Active Substance: PANCRELIPASE AMYLASE\PANCRELIPASE LIPASE\PANCRELIPASE PROTEASE
     Indication: Pancreatic failure
     Dosage: 3 DF  DOSAGE FORM 3 TIMES A DAY GTUBE?
     Route: 050
  2. Nitrofurantoin 25 mg/5ml [Concomitant]
  3. triamcinolone 0.025% ointment [Concomitant]
  4. digoxin 50 mcg/ml [Concomitant]
  5. levothyroxine 0.025 mg [Concomitant]
  6. LAMOTRIGINE [Concomitant]
     Active Substance: LAMOTRIGINE
  7. WARFARIN [Concomitant]
     Active Substance: WARFARIN
  8. ferrous sulfate 324 mg [Concomitant]
  9. clobazam 2.5 mg/ml [Concomitant]
  10. SPIRONOLACTONE [Concomitant]
     Active Substance: SPIRONOLACTONE

REACTIONS (1)
  - Death [None]
